FAERS Safety Report 6896904-0 (Version None)
Quarter: 2010Q3

REPORT INFORMATION
  Report Type: 
  Country: None (occurrence: None)
  Receive Date: 20100802
  Receipt Date: 20070222
  Transmission Date: 20110219
  Serious: Yes (Other)
  Sender: FDA-Public Use
  Company Number: US-PFIZER INC-2007014642

PATIENT
  Sex: Male
  Weight: 68 kg

DRUGS (4)
  1. LYRICA [Suspect]
     Indication: MIGRAINE
     Dates: start: 20061228
  2. ASACOL [Concomitant]
  3. NORVASC [Concomitant]
  4. ATENOLOL [Concomitant]

REACTIONS (10)
  - ANXIETY [None]
  - DRY MOUTH [None]
  - DYSPNOEA [None]
  - FEELING JITTERY [None]
  - INCREASED APPETITE [None]
  - MIGRAINE [None]
  - MUSCLE TWITCHING [None]
  - NAUSEA [None]
  - SENSORY DISTURBANCE [None]
  - SOMNOLENCE [None]
